FAERS Safety Report 6523487-7 (Version None)
Quarter: 2009Q4

REPORT INFORMATION
  Report Type: 
  Country: None (occurrence: None)
  Receive Date: 20091231
  Receipt Date: 20091217
  Transmission Date: 20100525
  Serious: Yes (Hospitalization)
  Sender: FDA-Public Use
  Company Number: PHHY2009JP37858

PATIENT
  Sex: Male
  Weight: 62 kg

DRUGS (5)
  1. ICL670A ICL+DISTAB [Suspect]
     Indication: MYELODYSPLASTIC SYNDROME
     Dosage: 1125 MG/DAY
     Route: 048
     Dates: start: 20081113, end: 20081209
  2. ZOSYN [Concomitant]
  3. OPALMON [Concomitant]
     Indication: SPINAL COLUMN STENOSIS
     Dosage: 15 UG, UNK
     Route: 048
     Dates: start: 20080510, end: 20081209
  4. METHYCOBAL [Concomitant]
     Indication: SPINAL COLUMN STENOSIS
     Dosage: 1500 UG, UNK
     Route: 048
     Dates: start: 20080530, end: 20081127
  5. RED BLOOD CELLS, LEUCOCYTE DEPLETED [Concomitant]
     Dosage: 4 UNITS EVERY TWO WEEKS
     Route: 042
     Dates: start: 20090129, end: 20090513

REACTIONS (6)
  - ANAEMIA [None]
  - HEPATIC FUNCTION ABNORMAL [None]
  - PLATELET COUNT DECREASED [None]
  - PNEUMONIA [None]
  - RENAL IMPAIRMENT [None]
  - WHITE BLOOD CELL COUNT DECREASED [None]
